FAERS Safety Report 9149432 (Version 1)
Quarter: 2013Q1

REPORT INFORMATION
  Report Type: Spontaneous
  Country: US (occurrence: None)
  Receive Date: 20130301
  Receipt Date: 20130301
  Transmission Date: 20140127
  Serious: Yes (Other)
  Sender: FDA-Public Use
  Company Number: None

PATIENT
  Age: 64 Year
  Sex: Male
  Weight: 86.64 kg

DRUGS (1)
  1. LYRICA 25 MG PFIZER PARKE-DAVIS [Suspect]
     Indication: ABDOMINAL PAIN
     Dosage: 25 MG TID PO
     Route: 048
     Dates: start: 20130222, end: 20130224

REACTIONS (7)
  - Restlessness [None]
  - Confusional state [None]
  - Gait disturbance [None]
  - Wheezing [None]
  - Oedema peripheral [None]
  - Cognitive disorder [None]
  - Abnormal behaviour [None]
